FAERS Safety Report 6842206-8 (Version None)
Quarter: 2010Q3

REPORT INFORMATION
  Report Type: 
  Country: None (occurrence: None)
  Receive Date: 20100714
  Receipt Date: 20071003
  Transmission Date: 20110219
  Serious: No
  Sender: FDA-Public Use
  Company Number: US-PFIZER INC-2007060820

PATIENT
  Sex: Female
  Weight: 90.9 kg

DRUGS (4)
  1. CHANTIX [Suspect]
     Indication: SMOKING CESSATION THERAPY
     Route: 048
     Dates: start: 20070712
  2. LASIX [Concomitant]
     Indication: BLADDER DISORDER
  3. POTASSIUM CHLORIDE [Concomitant]
     Indication: BLADDER DISORDER
  4. DRUG, UNSPECIFIED [Concomitant]
     Indication: DYSPNOEA

REACTIONS (2)
  - ARTHROPATHY [None]
  - OEDEMA PERIPHERAL [None]
